FAERS Safety Report 22256397 (Version 2)
Quarter: 2024Q3

REPORT INFORMATION
  Report Type: Spontaneous
  Country: DE (occurrence: DE)
  Receive Date: 20230426
  Receipt Date: 20240904
  Transmission Date: 20241017
  Serious: Yes (Life-Threatening, Other)
  Sender: VERTEX
  Company Number: None

PATIENT
  Age: 24 Year
  Sex: Male
  Weight: 62 kg

DRUGS (2)
  1. ELEXACAFTOR\IVACAFTOR\TEZACAFTOR [Suspect]
     Active Substance: ELEXACAFTOR\IVACAFTOR\TEZACAFTOR
     Indication: Cystic fibrosis
     Dosage: ADULT DOSAGE, 150MG ELEXACAFTOR/ 100 MG TEZACAFTOR/ 200 MG IVACAFTOR
     Route: 048
     Dates: start: 20220801, end: 20230401
  2. KALYDECO [Suspect]
     Active Substance: IVACAFTOR
     Indication: Cystic fibrosis
     Dosage: UNK, QD
     Route: 048

REACTIONS (6)
  - Testicular germ cell cancer metastatic [Not Recovered/Not Resolved]
  - Testis cancer [Unknown]
  - Asthenia [Unknown]
  - Performance status decreased [Unknown]
  - Testicular swelling [Unknown]
  - Abdominal pain [Unknown]

NARRATIVE: CASE EVENT DATE: 20230301
